FAERS Safety Report 23898445 (Version 4)
Quarter: 2024Q3

REPORT INFORMATION
  Report Type: Report from Study
  Country: US (occurrence: US)
  Receive Date: 20240525
  Receipt Date: 20240720
  Transmission Date: 20241017
  Serious: Yes (Hospitalization, Other)
  Sender: ABBVIE
  Company Number: US-ABBVIE-5768980

PATIENT
  Sex: Female

DRUGS (1)
  1. SKYRIZI [Suspect]
     Active Substance: RISANKIZUMAB-RZAA
     Indication: Crohn^s disease
     Route: 041
     Dates: start: 20240516

REACTIONS (5)
  - Norovirus infection [Unknown]
  - Cerebrospinal fluid leakage [Unknown]
  - Post procedural complication [Unknown]
  - Clostridium difficile infection [Unknown]
  - Spinal implantation [Unknown]

NARRATIVE: CASE EVENT DATE: 20240101
